FAERS Safety Report 5290300-8 (Version None)
Quarter: 2007Q2

REPORT INFORMATION
  Report Type: 
  Country: None (occurrence: None)
  Receive Date: 20070409
  Receipt Date: 20070330
  Transmission Date: 20071010
  Serious: Yes (Hospitalization, Other)
  Sender: FDA-Public Use
  Company Number: IE-ELI_LILLY_AND_COMPANY-IE200703000758

PATIENT
  Age: 36 Year
  Sex: Male
  Weight: 109 kg

DRUGS (6)
  1. ZYPREXA [Suspect]
     Indication: BIPOLAR DISORDER
     Dosage: 10 MG, EACH EVENING
     Route: 048
     Dates: start: 20070213, end: 20070214
  2. ZYPREXA [Suspect]
     Dosage: 15 MG, EACH EVENING
     Route: 048
     Dates: start: 20070215, end: 20070303
  3. PRIADEL [Concomitant]
     Indication: BIPOLAR DISORDER
     Dosage: 1000 MG, EACH EVENING
     Route: 048
  4. DIAZEPAM [Concomitant]
     Dosage: 10 MG, EACH EVENING
     Route: 048
  5. FLURAZEPAM [Concomitant]
     Dosage: 30 MG, EACH EVENING
  6. KEMADRIN [Concomitant]
     Indication: EXTRAPYRAMIDAL DISORDER
     Dosage: 10 MG, 2/D
     Route: 048
     Dates: start: 20070213

REACTIONS (6)
  - C-REACTIVE PROTEIN INCREASED [None]
  - DYSPEPSIA [None]
  - MALAISE [None]
  - PAIN IN EXTREMITY [None]
  - VASCULITIC RASH [None]
  - VASCULITIS [None]
